FAERS Safety Report 19643485 (Version 4)
Quarter: 2024Q1

REPORT INFORMATION
  Report Type: Report from Study
  Country: AR (occurrence: AR)
  Receive Date: 20210731
  Receipt Date: 20240209
  Transmission Date: 20240410
  Serious: Yes (Death, Other)
  Sender: FDA-Public Use
  Company Number: AR-NOVARTISPH-NVSC2020AR261214

PATIENT
  Age: 69 Year
  Sex: Female

DRUGS (5)
  1. COSENTYX [Suspect]
     Active Substance: SECUKINUMAB
     Indication: Psoriatic arthropathy
     Dosage: 150 MG, QMO
     Route: 058
     Dates: start: 20170105, end: 202012
  2. COSENTYX [Suspect]
     Active Substance: SECUKINUMAB
     Indication: Guttate psoriasis
     Dosage: 300 MG
     Route: 065
     Dates: start: 20170105
  3. COSENTYX [Suspect]
     Active Substance: SECUKINUMAB
     Dosage: 300 MG, QMO (2 OF 150 MG)
     Route: 065
     Dates: start: 202002
  4. METHOTREXATE [Concomitant]
     Active Substance: METHOTREXATE
     Indication: Psoriasis
     Dosage: UNK, QW (DOSE REPORTED AS 1 (UNKNOWN UNIT), STARTED MANY YEARS AGO)
     Route: 065
  5. CANNABIS SATIVA SUBSP. INDICA TOP [Concomitant]
     Active Substance: CANNABIS SATIVA SUBSP. INDICA TOP
     Indication: Fibromyalgia
     Dosage: UNK (PATIENT TOOK IT TIME BY TIME FOR FIBROMYALGIA)
     Route: 065

REACTIONS (20)
  - Pneumonia [Fatal]
  - Psoriatic arthropathy [Unknown]
  - Kidney small [Unknown]
  - Chronic obstructive pulmonary disease [Unknown]
  - Alopecia [Recovering/Resolving]
  - Nervousness [Unknown]
  - Cyst [Recovered/Resolved]
  - Pain in extremity [Recovered/Resolved]
  - Movement disorder [Unknown]
  - Hepatic steatosis [Unknown]
  - Acne [Unknown]
  - Abdominal pain [Unknown]
  - Musculoskeletal discomfort [Unknown]
  - Pain [Unknown]
  - Tendonitis [Unknown]
  - Memory impairment [Unknown]
  - Rash macular [Unknown]
  - Nasopharyngitis [Unknown]
  - Scab [Unknown]
  - Melanocytic naevus [Unknown]

NARRATIVE: CASE EVENT DATE: 20200101
